FAERS Safety Report 6423751-6 (Version None)
Quarter: 2009Q4

REPORT INFORMATION
  Report Type: 
  Country: None (occurrence: None)
  Receive Date: 20091030
  Receipt Date: 20091030
  Transmission Date: 20100525
  Serious: Yes (Hospitalization)
  Sender: FDA-Public Use
  Company Number: None

PATIENT
  Age: 79 Year
  Sex: Male

DRUGS (2)
  1. WARFARIN SODIUM [Suspect]
     Indication: ATRIAL FIBRILLATION
     Dosage: 2.5 MG EVERY DAY PO
     Route: 048
     Dates: start: 20030822, end: 20090908
  2. AZITHROMYCIN [Suspect]
     Dosage: 250 EVERY DAY PO
     Route: 048
     Dates: start: 20090904, end: 20090908

REACTIONS (4)
  - EPISTAXIS [None]
  - HAEMOPTYSIS [None]
  - INTERNATIONAL NORMALISED RATIO ABNORMAL [None]
  - THERAPEUTIC AGENT TOXICITY [None]
